FAERS Safety Report 15133702 (Version 1)
Quarter: 2018Q3

REPORT INFORMATION
  Report Type: Spontaneous
  Country: US (occurrence: US)
  Receive Date: 20180615
  Receipt Date: 20180615
  Transmission Date: 20181010
  Serious: Yes (Disabling)
  Sender: FDA-Public Use
  Company Number: None

PATIENT
  Age: 42 Year
  Sex: Female

DRUGS (1)
  1. LUPRON [Suspect]
     Active Substance: LEUPROLIDE ACETATE
     Indication: ENDOMETRIOSIS
     Dates: start: 19960601, end: 19961201

REACTIONS (5)
  - Mitochondrial DNA mutation [None]
  - Arthralgia [None]
  - Thyroid disorder [None]
  - Osteopenia [None]
  - Muscle disorder [None]

NARRATIVE: CASE EVENT DATE: 19960601
